FAERS Safety Report 8033633-4 (Version None)
Quarter: 2012Q1

REPORT INFORMATION
  Report Type: 
  Country: None (occurrence: None)
  Receive Date: 20120110
  Receipt Date: 20120106
  Transmission Date: 20120608
  Serious: No
  Sender: FDA-Public Use
  Company Number: US-PFIZER INC-2012004916

PATIENT
  Age: 83 Year

DRUGS (1)
  1. TYGACIL [Suspect]
     Indication: CHOLECYSTITIS INFECTIVE
     Dosage: UNK
     Route: 042

REACTIONS (1)
  - DRUG INEFFECTIVE [None]
